FAERS Safety Report 24281451 (Version 1)
Quarter: 2024Q3

REPORT INFORMATION
  Report Type: Spontaneous
  Country: FR (occurrence: FR)
  Receive Date: 20240904
  Receipt Date: 20240904
  Transmission Date: 20241017
  Serious: Yes (Other)
  Sender: MERCK
  Company Number: None

PATIENT
  Age: 47 Year
  Sex: Female

DRUGS (20)
  1. PEMBROLIZUMAB [Suspect]
     Active Substance: PEMBROLIZUMAB
     Indication: Lung adenocarcinoma stage IV
     Route: 042
     Dates: start: 202104, end: 202303
  2. LUMAKRAS [Suspect]
     Active Substance: SOTORASIB
     Indication: Lung adenocarcinoma stage IV
     Dosage: 8 DOSAGE FORM, QD
     Route: 048
     Dates: start: 20230414, end: 202308
  3. TAXOL [Suspect]
     Active Substance: PACLITAXEL
     Indication: Lung adenocarcinoma stage IV
     Dosage: 90 MILLIGRAM/SQ. METER, CYCLICAL
     Route: 042
     Dates: start: 20230904, end: 20231031
  4. AVASTIN [Suspect]
     Active Substance: BEVACIZUMAB
     Indication: Lung adenocarcinoma stage IV
     Dosage: 10 MILLIGRAM/KILOGRAM, CYCLICAL
     Route: 042
     Dates: start: 20230904, end: 20231031
  5. FOLIC ACID [Concomitant]
     Active Substance: FOLIC ACID
  6. LACTULOSE [Concomitant]
     Active Substance: LACTULOSE
  7. DENOSUMAB [Concomitant]
     Active Substance: DENOSUMAB
  8. GABAPENTIN [Concomitant]
     Active Substance: GABAPENTIN
  9. METHADONE HYDROCHLORIDE [Concomitant]
     Active Substance: METHADONE HYDROCHLORIDE
  10. DEXAMETHASONE [Concomitant]
     Active Substance: DEXAMETHASONE
  11. ZINC GLUCONATE [Concomitant]
     Active Substance: ZINC GLUCONATE
  12. ACETAMINOPHEN [Concomitant]
     Active Substance: ACETAMINOPHEN
  13. AMITRIPTYLINE [Concomitant]
     Active Substance: AMITRIPTYLINE
  14. CYAMEMAZINE [Concomitant]
     Active Substance: CYAMEMAZINE
  15. OXAZEPAM [Concomitant]
     Active Substance: OXAZEPAM
  16. CALCIUM CARBONATE\CHOLECALCIFEROL [Concomitant]
     Active Substance: CALCIUM CARBONATE\CHOLECALCIFEROL
  17. INNOHEP [Concomitant]
     Active Substance: TINZAPARIN SODIUM
  18. METOPIMAZINE [Concomitant]
     Active Substance: METOPIMAZINE
  19. BETAMETHASONE DIPROPIONATE [Concomitant]
     Active Substance: BETAMETHASONE DIPROPIONATE
  20. LOPERAMIDE HYDROCHLORIDE [Concomitant]
     Active Substance: LOPERAMIDE HYDROCHLORIDE

REACTIONS (1)
  - Extramedullary haemopoiesis [Not Recovered/Not Resolved]

NARRATIVE: CASE EVENT DATE: 20231124
